FAERS Safety Report 5324675-8 (Version None)
Quarter: 2007Q2

REPORT INFORMATION
  Report Type: 
  Country: None (occurrence: None)
  Receive Date: 20070509
  Receipt Date: 20070427
  Transmission Date: 20071010
  Serious: Yes (Hospitalization)
  Sender: FDA-Public Use
  Company Number: 16410

PATIENT
  Age: 56 Year
  Sex: Female
  Weight: 88 kg

DRUGS (8)
  1. CARBOPLATIN [Suspect]
     Dosage: 715 MG FREQ IV
     Route: 042
     Dates: start: 20070405, end: 20070405
  2. COMBIVENT [Concomitant]
  3. COMBIVENT [Concomitant]
  4. GRAINSETRON [Concomitant]
  5. METOCLOPRAMIDE [Concomitant]
  6. SEREVENT [Concomitant]
  7. SODIUM DOCUSATE [Concomitant]
  8. DEXAMETHASONE 0.5MG TAB [Concomitant]

REACTIONS (4)
  - BLOOD PRESSURE ABNORMAL [None]
  - DIZZINESS [None]
  - HEART RATE INCREASED [None]
  - HYPERHIDROSIS [None]
